FAERS Safety Report 23403270 (Version 1)
Quarter: 2024Q1

REPORT INFORMATION
  Report Type: Spontaneous
  Country: VN (occurrence: VN)
  Receive Date: 20240116
  Receipt Date: 20240116
  Transmission Date: 20240410
  Serious: No
  Sender: FDA-Public Use
  Company Number: VN-ALKEM LABORATORIES LIMITED-VN-ALKEM-2023-12385

PATIENT
  Age: 47 Year
  Sex: Male

DRUGS (11)
  1. CAPECITABINE [Suspect]
     Active Substance: CAPECITABINE
     Indication: Rectal cancer
     Dosage: 1250 MILLIGRAM/SQ. METER, BID (TWICE A DAY) (DAYS 1-14, EVERY 3 WEEKS) (TWO CYCLES)
     Route: 065
  2. CAPECITABINE [Suspect]
     Active Substance: CAPECITABINE
     Indication: Metastases to central nervous system
     Dosage: UNK (RESTART THREE CYCLES)
     Route: 065
  3. CETUXIMAB [Suspect]
     Active Substance: CETUXIMAB
     Indication: Rectal cancer
     Dosage: 400 MILLIGRAM/SQ. METER (INITIAL DOSE)
     Route: 065
  4. CETUXIMAB [Suspect]
     Active Substance: CETUXIMAB
     Dosage: 250 MILLIGRAM/SQ. METER, ONCE WEEKLY (INITIAL TREATMENT FOR 12 CYCLES)
     Route: 065
  5. FLUOROURACIL [Concomitant]
     Active Substance: FLUOROURACIL
     Indication: Rectal cancer
     Dosage: 2400 MILLIGRAM/SQ. METER, ONCE IN 2 WEEKS (48-H CONTINUOUS INFUSION STARTING ON DAY 1, EVERY 2 WEEKS
     Route: 065
  6. FLUOROURACIL [Concomitant]
     Active Substance: FLUOROURACIL
     Dosage: 400 MILLIGRAM/SQ. METER
     Route: 040
  7. FLUOROURACIL [Concomitant]
     Active Substance: FLUOROURACIL
     Dosage: 2400 MILLIGRAM/SQ. METER, ONCE IN 2 WEEKS (46-H CONTINUOUS INFUSION STARTING ON DAY 1, EVERY 2 WEEKS
     Route: 065
  8. IRINOTECAN [Concomitant]
     Active Substance: IRINOTECAN
     Indication: Rectal cancer
     Dosage: 150 MILLIGRAM/SQ. METER
     Route: 065
  9. IRINOTECAN [Concomitant]
     Active Substance: IRINOTECAN
     Dosage: 180 MILLIGRAM/SQ. METER
     Route: 065
  10. LEUCOVORIN [Concomitant]
     Active Substance: LEUCOVORIN\LEUCOVORIN CALCIUM
     Indication: Rectal cancer
     Dosage: 200 MILLIGRAM/SQ. METER
     Route: 065
  11. OXALIPLATIN [Concomitant]
     Active Substance: OXALIPLATIN
     Indication: Rectal cancer
     Dosage: 85 MILLIGRAM/SQ. METER
     Route: 065

REACTIONS (2)
  - Rash [Unknown]
  - Therapy non-responder [Unknown]
